FAERS Safety Report 6465684-5 (Version None)
Quarter: 2009Q4

REPORT INFORMATION
  Report Type: 
  Country: None (occurrence: None)
  Receive Date: 20091118
  Receipt Date: 20090622
  Transmission Date: 20100525
  Serious: Yes (Hospitalization)
  Sender: FDA-Public Use
  Company Number: 2009BI018245

PATIENT
  Age: 21 Year
  Sex: Male
  Weight: 54.8852 kg

DRUGS (1)
  1. TYSABRI [Suspect]
     Indication: CROHN'S DISEASE
     Dosage: 300 MG; QM; IV
     Route: 042
     Dates: start: 20081008

REACTIONS (3)
  - CROHN'S DISEASE [None]
  - FOOD POISONING [None]
  - VITAMIN D DECREASED [None]
